FAERS Safety Report 9922496 (Version 1)
Quarter: 2014Q1

REPORT INFORMATION
  Report Type: Spontaneous
  Country: US (occurrence: US)
  Receive Date: 20140225
  Receipt Date: 20140225
  Transmission Date: 20141002
  Serious: Yes (Other)
  Sender: FDA-Public Use
  Company Number: US-PFIZER INC-2014052681

PATIENT
  Age: 61 Year
  Sex: Female
  Weight: 104.31 kg

DRUGS (6)
  1. LYRICA [Suspect]
     Indication: FIBROMYALGIA
     Dosage: 50 MG, 3X/DAY
     Dates: start: 201401
  2. LYRICA [Suspect]
     Dosage: 100 MG, 2X/DAY
     Dates: start: 2014
  3. LYRICA [Suspect]
     Dosage: 150 MG, 2X/DAY
     Dates: start: 2014
  4. ATENOLOL [Concomitant]
     Indication: HYPERTENSION
     Dosage: UNK
  5. ZOLPIDEM [Concomitant]
     Indication: SLEEP DISORDER
     Dosage: UNK
  6. HYDROTHIAZIDE [Concomitant]
     Dosage: UNK

REACTIONS (2)
  - Dysstasia [Unknown]
  - Drug effect incomplete [Unknown]
